FAERS Safety Report 10084508 (Version 2)
Quarter: 2014Q2

REPORT INFORMATION
  Report Type: Report from Study
  Country: TW (occurrence: TW)
  Receive Date: 20140417
  Receipt Date: 20140515
  Transmission Date: 20141212
  Serious: Yes (Hospitalization, Other)
  Sender: FDA-Public Use
  Company Number: PHHY2014TW046889

PATIENT
  Sex: Male
  Weight: 70 kg

DRUGS (1)
  1. EXELON [Suspect]
     Indication: DEMENTIA ALZHEIMER^S TYPE
     Dosage: 6 MG, DAILY
     Route: 048
     Dates: start: 201208, end: 201210

REACTIONS (1)
  - Epilepsy [Recovering/Resolving]
